FAERS Safety Report 6599928-6 (Version None)
Quarter: 2010Q1

REPORT INFORMATION
  Report Type: 
  Country: None (occurrence: None)
  Receive Date: 20100217
  Receipt Date: 20100203
  Transmission Date: 20100710
  Serious: Yes (Other)
  Sender: FDA-Public Use
  Company Number: PHHY2010AU06104

PATIENT
  Sex: Male

DRUGS (2)
  1. VISUDYNE [Suspect]
  2. AVASTIN [Suspect]

REACTIONS (1)
  - BLINDNESS UNILATERAL [None]
